FAERS Safety Report 8961706 (Version 2)
Quarter: 2012Q4

REPORT INFORMATION
  Report Type: 
  Country: US (occurrence: US)
  Receive Date: 20121212
  Receipt Date: 20121219
  Transmission Date: 20130627
  Serious: No
  Sender: FDA-Public Use
  Company Number: US-VERTEX PHARMACEUTICALS INC.-2012-025759

PATIENT
  Sex: Female

DRUGS (3)
  1. VX-950 (TELAPREVIR) [Suspect]
     Indication: HEPATITIS C
     Dosage: 750 mg, tid
     Route: 048
     Dates: start: 201210
  2. PEGASYS [Suspect]
     Indication: HEPATITIS C
     Dosage: 180 ?g, qw
     Route: 058
     Dates: start: 201210
  3. RIBAPAK [Suspect]
     Indication: HEPATITIS C
     Dosage: 600mg AM 400mg PM
     Route: 048
     Dates: start: 201210

REACTIONS (3)
  - Dry mouth [Unknown]
  - Dry skin [Unknown]
  - Fatigue [Unknown]
